FAERS Safety Report 8905227 (Version 13)
Quarter: 2014Q2

REPORT INFORMATION
  Report Type: Spontaneous
  Country: US (occurrence: US)
  Receive Date: 20121112
  Receipt Date: 20140515
  Transmission Date: 20141212
  Serious: Yes (Other)
  Sender: FDA-Public Use
  Company Number: PHEH2012US022246

PATIENT
  Sex: Male
  Weight: 108.6 kg

DRUGS (2)
  1. ZOMETA [Suspect]
     Route: 041
  2. AREDIA [Suspect]
     Route: 042

REACTIONS (115)
  - Osteonecrosis of jaw [Unknown]
  - Ulcer [Unknown]
  - Pain [Unknown]
  - Infection [Unknown]
  - Deformity [Unknown]
  - Injury [Unknown]
  - Emotional distress [Unknown]
  - Anxiety [Unknown]
  - Physical disability [Unknown]
  - Bone swelling [Unknown]
  - Osteomyelitis [Unknown]
  - Pathological fracture [Unknown]
  - Bronchitis [Recovered/Resolved]
  - Pneumonia [Unknown]
  - Nasal congestion [Unknown]
  - Lung infection [Unknown]
  - Cataract [Unknown]
  - Visual acuity reduced [Unknown]
  - Sinusitis [Unknown]
  - Chronic obstructive pulmonary disease [Unknown]
  - Deafness [Unknown]
  - Dyspnoea [Unknown]
  - Tinnitus [Unknown]
  - Malignant melanoma [Unknown]
  - Melanocytic naevus [Unknown]
  - Skin cancer [Unknown]
  - Fall [Unknown]
  - Cerebral atrophy [Unknown]
  - Cerebral arteriosclerosis [Unknown]
  - Lacunar infarction [Unknown]
  - Upper respiratory tract infection [Unknown]
  - Pollakiuria [Unknown]
  - Gastroenteritis [Unknown]
  - Bundle branch block right [Unknown]
  - Osteoarthritis [Unknown]
  - Hypogonadism [Unknown]
  - Cellulitis [Unknown]
  - Loose tooth [Unknown]
  - Arteriosclerosis coronary artery [Unknown]
  - Tooth abscess [Unknown]
  - Spondylolisthesis [Unknown]
  - Arthropathy [Unknown]
  - Dental caries [Unknown]
  - Lower respiratory tract infection [Unknown]
  - Purulent discharge [Unknown]
  - Oedema mucosal [Unknown]
  - Bone pain [Unknown]
  - Arthritis [Unknown]
  - Mastication disorder [Unknown]
  - Eating disorder [Unknown]
  - Aphthous stomatitis [Unknown]
  - Hyperthyroidism [Unknown]
  - Swelling face [Unknown]
  - Exposed bone in jaw [Unknown]
  - Erythema [Unknown]
  - Breath odour [Unknown]
  - Gingival bleeding [Unknown]
  - Impaired healing [Unknown]
  - Mass [Unknown]
  - Hyperaemia [Unknown]
  - Intussusception [Unknown]
  - Haematuria [Unknown]
  - Parotid gland enlargement [Unknown]
  - Papule [Unknown]
  - Skin hypopigmentation [Unknown]
  - Hyperlipidaemia [Unknown]
  - Gingivitis [Unknown]
  - Upper-airway cough syndrome [Recovered/Resolved]
  - Scoliosis [Unknown]
  - Intervertebral disc degeneration [Unknown]
  - Renal atrophy [Unknown]
  - Aortic disorder [Unknown]
  - Aortic calcification [Unknown]
  - Pleural fibrosis [Unknown]
  - Vision blurred [Unknown]
  - Disturbance in attention [Unknown]
  - Benign prostatic hyperplasia [Unknown]
  - Anhedonia [Unknown]
  - Libido decreased [Unknown]
  - Paranasal sinus discomfort [Unknown]
  - Bronchial hyperreactivity [Unknown]
  - Prostatomegaly [Unknown]
  - Toothache [Unknown]
  - Tooth fracture [Unknown]
  - Obesity [Unknown]
  - Pneumonitis [Unknown]
  - Seborrhoeic keratosis [Unknown]
  - Cerumen impaction [Unknown]
  - Tooth infection [Unknown]
  - Hypercholesterolaemia [Unknown]
  - Rhinorrhoea [Unknown]
  - Productive cough [Unknown]
  - Gingival abscess [Unknown]
  - Rhonchi [Recovering/Resolving]
  - Testicular atrophy [Unknown]
  - Erectile dysfunction [Unknown]
  - Peripheral swelling [Unknown]
  - Myocardial ischaemia [Unknown]
  - Nocturia [Unknown]
  - Ear pain [Unknown]
  - Oedema peripheral [Unknown]
  - Gingival swelling [Unknown]
  - Oral infection [Unknown]
  - Skin lesion [Unknown]
  - Osteosclerosis [Unknown]
  - Osteolysis [Unknown]
  - Foot deformity [Unknown]
  - Nervousness [Unknown]
  - Neck pain [Unknown]
  - Fatigue [Unknown]
  - Oropharyngeal pain [Unknown]
  - Malaise [Unknown]
  - Arthralgia [Unknown]
  - Wheezing [Recovering/Resolving]
  - Cough [Unknown]
